FAERS Safety Report 5033472-2 (Version None)
Quarter: 2006Q2

REPORT INFORMATION
  Report Type: 
  Country: None (occurrence: None)
  Receive Date: 20060621
  Receipt Date: 20060609
  Transmission Date: 20061013
  Serious: Yes (Death)
  Sender: FDA-Public Use
  Company Number: USA-2006-0024454

PATIENT
  Age: 45 Year
  Sex: Male
  Weight: 113.4 kg

DRUGS (3)
  1. OXYCODONE HCL [Suspect]
     Dosage: UNK
     Route: 065
  2. METHAMPHETAMINE HYDROCHLORIDE [Suspect]
     Dosage: UNK
     Route: 065
  3. AMPHETAMINE SULFATE [Suspect]
     Dosage: UNK
     Route: 065

REACTIONS (32)
  - ABDOMINAL INJURY [None]
  - AORTIC DISORDER [None]
  - ARTERIOSCLEROSIS CORONARY ARTERY [None]
  - CARDIAC DISORDER [None]
  - CARDIOMEGALY [None]
  - CHEST INJURY [None]
  - CLAVICLE FRACTURE [None]
  - CONTUSION [None]
  - CORONARY ARTERY STENOSIS [None]
  - DIAPHRAGMATIC INJURY [None]
  - EXCORIATION [None]
  - FEMUR FRACTURE [None]
  - FIBULA FRACTURE [None]
  - GALLBLADDER DISORDER [None]
  - HAEMOTHORAX [None]
  - HEAD INJURY [None]
  - HEART INJURY [None]
  - LACERATION [None]
  - LIMB INJURY [None]
  - LIVER DISORDER [None]
  - LUNG INJURY [None]
  - NERVOUS SYSTEM DISORDER [None]
  - PELVIC FRACTURE [None]
  - PERICARDIAL HAEMORRHAGE [None]
  - POLYTRAUMATISM [None]
  - RIB FRACTURE [None]
  - ROAD TRAFFIC ACCIDENT [None]
  - SKULL FRACTURE [None]
  - STERNAL FRACTURE [None]
  - TIBIA FRACTURE [None]
  - TRAUMATIC BRAIN INJURY [None]
  - VENA CAVA INJURY [None]
